FAERS Safety Report 8504013-X (Version None)
Quarter: 2012Q3

REPORT INFORMATION
  Report Type: 
  Country: None (occurrence: None)
  Receive Date: 20120711
  Receipt Date: 20120702
  Transmission Date: 20120928
  Serious: Yes (Congenital Anomaly)
  Sender: FDA-Public Use
  Company Number: US-ABBOTT-12P-163-0952287-00

PATIENT
  Sex: Female
  Weight: 1.855 kg

DRUGS (2)
  1. KALETRA [Suspect]
     Indication: MATERNAL EXPOSURE TIMING UNSPECIFIED
     Route: 064
  2. COMBIVIR [Suspect]
     Indication: MATERNAL EXPOSURE TIMING UNSPECIFIED
     Route: 064

REACTIONS (6)
  - HYDRONEPHROSIS [None]
  - FOETAL EXPOSURE DURING PREGNANCY [None]
  - NEURAL TUBE DEFECT [None]
  - PULMONARY ARTERY STENOSIS CONGENITAL [None]
  - CONGENITAL MEGAURETER [None]
  - ATRIAL SEPTAL DEFECT [None]
